FAERS Safety Report 9069756 (Version 1)
Quarter: 2012Q4

REPORT INFORMATION
  Report Type: Report from Study
  Country: US (occurrence: US)
  Receive Date: 20121001
  Receipt Date: 20121001
  Transmission Date: 20130627
  Serious: Yes (Hospitalization)
  Sender: FDA-Public Use
  Company Number: US-RB-022734-09

PATIENT
  Age: 42 Year
  Sex: Female

DRUGS (4)
  1. SUBOXONE TABLET [Suspect]
     Indication: DRUG DEPENDENCE
     Route: 060
     Dates: start: 2007, end: 200910
  2. SUBUTEX [Suspect]
     Indication: DRUG DEPENDENCE
     Route: 060
     Dates: start: 20091001, end: 201002
  3. PRENATAL VITAMINS [Concomitant]
     Indication: PRODUCT USED FOR UNKNOWN INDICATION
     Dosage: 1.5 twice daily
     Route: 065
     Dates: end: 201005
  4. IRON PILLS [Concomitant]
     Indication: PRODUCT USED FOR UNKNOWN INDICATION
     Dosage: Dosing details unknown
     Route: 065
     Dates: end: 201005

REACTIONS (3)
  - Pre-eclampsia [Recovered/Resolved]
  - Drug withdrawal syndrome [Recovered/Resolved]
  - Exposure during pregnancy [Recovered/Resolved]
